FAERS Safety Report 7938449-2 (Version None)
Quarter: 2011Q4

REPORT INFORMATION
  Report Type: 
  Country: None (occurrence: None)
  Receive Date: 20111123
  Receipt Date: 20111117
  Transmission Date: 20120403
  Serious: Yes (Disabling)
  Sender: FDA-Public Use
  Company Number: FR-GILEAD-2011-0046306

PATIENT
  Sex: Female

DRUGS (8)
  1. TRUVADA [Suspect]
     Indication: HIV INFECTION
     Dosage: 200 DF, UNK
     Route: 048
     Dates: start: 20080501
  2. SUSTIVA [Concomitant]
     Dosage: UNK
     Dates: start: 20020101
  3. VIDEX [Concomitant]
     Dosage: UNK
     Dates: start: 20060101, end: 20080501
  4. NORVIR [Concomitant]
     Dosage: 100 DF, UNK
     Route: 048
     Dates: start: 20060101
  5. REYATAZ [Concomitant]
     Dosage: 1 DF, UNK
     Route: 048
     Dates: start: 20060101
  6. SUSTIVA [Concomitant]
     Dosage: UNK
     Dates: start: 20060101, end: 20080501
  7. VIDEX [Concomitant]
     Dosage: UNK
     Dates: start: 20020101
  8. NORVIR [Concomitant]
     Dosage: 100 UNK, UNK
     Dates: start: 19990801

REACTIONS (2)
  - PREGNANCY [None]
  - OSTEONECROSIS [None]
